FAERS Safety Report 24921300 (Version 1)
Quarter: 2025Q1

REPORT INFORMATION
  Report Type: Spontaneous
  Country: AU (occurrence: AU)
  Receive Date: 20250204
  Receipt Date: 20250204
  Transmission Date: 20250408
  Serious: Yes (Hospitalization)
  Sender: MACLEODS
  Company Number: AU-MLMSERVICE-20250121-PI360683-00076-2

PATIENT

DRUGS (13)
  1. CANDESARTAN [Suspect]
     Active Substance: CANDESARTAN
     Indication: Product used for unknown indication
     Dosage: PRESCRIBED HALF A 16MG CANDESARTAN TABLET, HE HAD IN FACT BEEN TAKING A WHOLE ONE
     Route: 065
  2. FUROSEMIDE [Concomitant]
     Active Substance: FUROSEMIDE
     Indication: Product used for unknown indication
     Dosage: FRUSEMIDE TABLETS 40MG; ALTERNATING ONE/TWO TABLETS EACH MORNING
     Route: 065
  3. FUROSEMIDE [Concomitant]
     Active Substance: FUROSEMIDE
     Dosage: FRUSEMIDE TABLETS 40MG; ALTERNATING ONE/TWO TABLETS EACH MORNING
     Route: 065
  4. METFORMIN [Concomitant]
     Active Substance: METFORMIN HYDROCHLORIDE
     Indication: Product used for unknown indication
     Dosage: METFORMIN TABLETS 850MG; ONE TWICE A DAY
     Route: 065
  5. PROPYLTHIOURACIL [Concomitant]
     Active Substance: PROPYLTHIOURACIL
     Indication: Product used for unknown indication
     Dosage: PROPYLTHIOURACIL TABLETS 50MG; ONE THREE TIMES A DAY
     Route: 065
  6. ROSUVASTATIN [Concomitant]
     Active Substance: ROSUVASTATIN
     Indication: Product used for unknown indication
     Dosage: ROSUVASTATIN TABLETS 20MG; ONE EACH MORNING
     Route: 065
  7. WARFARIN [Concomitant]
     Active Substance: WARFARIN
     Indication: Product used for unknown indication
     Dosage: WARFARIN TABLETS 1MG; ONE IN THE EVENING ACCORDING TO INR
     Route: 065
  8. WARFARIN [Concomitant]
     Active Substance: WARFARIN
     Dosage: WARFARIN TABLETS 5MG; ONE IN EVENING ACCORDING TO INR
     Route: 065
  9. AMIODARONE [Concomitant]
     Active Substance: AMIODARONE
     Indication: Product used for unknown indication
     Dosage: AMIODARONE 200MG TABLET ONE ALTERNATE DAYS
     Route: 065
  10. ASPIRIN [Concomitant]
     Active Substance: ASPIRIN
     Indication: Product used for unknown indication
     Dosage: ASPIRIN 100MG TABLET ONE EACH MORNING
     Route: 065
  11. CARVEDILOL [Concomitant]
     Active Substance: CARVEDILOL
     Indication: Product used for unknown indication
     Dosage: CARVEDILOL TABLETS 25MG; ONE TWICE A DAY
     Route: 065
  12. EZETIMIBE [Concomitant]
     Active Substance: EZETIMIBE
     Indication: Product used for unknown indication
     Dosage: EZETIMIBE TABLETS 10MG; ONE EACH MORNING
     Route: 065
  13. GLICLAZIDE [Concomitant]
     Active Substance: GLICLAZIDE
     Indication: Product used for unknown indication
     Dosage: GLICLAZIDE MR TABLETS 60MG; TWO EACH MORNING
     Route: 065

REACTIONS (5)
  - Renal impairment [Recovering/Resolving]
  - Hypotension [Recovering/Resolving]
  - Hyperkalaemia [Recovering/Resolving]
  - Incorrect dose administered [Recovered/Resolved]
  - Product physical issue [Recovered/Resolved]
